FAERS Safety Report 5476852-3 (Version None)
Quarter: 2007Q4

REPORT INFORMATION
  Report Type: 
  Country: None (occurrence: None)
  Receive Date: 20071004
  Receipt Date: 20070924
  Transmission Date: 20080405
  Serious: Yes (Other)
  Sender: FDA-Public Use
  Company Number: GT-ROCHE-521889

PATIENT
  Age: 80 Year
  Sex: Female

DRUGS (1)
  1. BONIVA [Suspect]
     Indication: OSTEOPOROSIS
     Route: 048
     Dates: start: 20070625, end: 20070825

REACTIONS (4)
  - DENGUE FEVER [None]
  - DIARRHOEA [None]
  - EPISTAXIS [None]
  - NAUSEA [None]
